FAERS Safety Report 7612217-3 (Version None)
Quarter: 2011Q3

REPORT INFORMATION
  Report Type: 
  Country: None (occurrence: None)
  Receive Date: 20110715
  Receipt Date: 20110706
  Transmission Date: 20111222
  Serious: Yes (Other)
  Sender: FDA-Public Use
  Company Number: US-ABBOTT-11P-163-0837215-00

PATIENT
  Age: 68 Year
  Sex: Male

DRUGS (3)
  1. BYSTOLIC [Concomitant]
     Indication: BLOOD PRESSURE
     Route: 048
  2. HUMIRA [Suspect]
     Indication: PSORIASIS
     Dates: start: 20100601
  3. HYZAAR [Concomitant]
     Indication: BLOOD PRESSURE
     Dosage: 10/20MG
     Route: 048

REACTIONS (5)
  - DEVICE MALFUNCTION [None]
  - INJECTION SITE HAEMATOMA [None]
  - BASAL CELL CARCINOMA [None]
  - SKIN LESION [None]
  - INCREASED TENDENCY TO BRUISE [None]
